FAERS Safety Report 26134862 (Version 1)
Quarter: 2025Q4

REPORT INFORMATION
  Report Type: Spontaneous
  Country: CN (occurrence: CN)
  Receive Date: 20251209
  Receipt Date: 20251209
  Transmission Date: 20260117
  Serious: Yes (Other)
  Sender: MYLAN
  Company Number: CN-MYLANLABS-2025M1104721

PATIENT
  Age: 72 Year
  Sex: Male
  Weight: 64 kg

DRUGS (6)
  1. CARDURA XL [Suspect]
     Active Substance: DOXAZOSIN MESYLATE
     Indication: Type 2 diabetes mellitus
     Dosage: 4 MILLIGRAM, QD
     Dates: start: 20251118, end: 20251119
  2. CARDURA XL [Suspect]
     Active Substance: DOXAZOSIN MESYLATE
     Indication: Pulmonary sarcoidosis
     Dosage: 4 MILLIGRAM, QD
     Route: 048
     Dates: start: 20251118, end: 20251119
  3. CARDURA XL [Suspect]
     Active Substance: DOXAZOSIN MESYLATE
     Indication: Hypertension
     Dosage: 4 MILLIGRAM, QD
     Route: 048
     Dates: start: 20251118, end: 20251119
  4. CARDURA XL [Suspect]
     Active Substance: DOXAZOSIN MESYLATE
     Indication: Osteoporosis
     Dosage: 4 MILLIGRAM, QD
     Dates: start: 20251118, end: 20251119
  5. CARDURA XL [Suspect]
     Active Substance: DOXAZOSIN MESYLATE
     Indication: Arteriosclerosis coronary artery
  6. CARDURA XL [Suspect]
     Active Substance: DOXAZOSIN MESYLATE
     Indication: Diabetic nephropathy

REACTIONS (1)
  - Diarrhoea [Recovered/Resolved]

NARRATIVE: CASE EVENT DATE: 20251118
